FAERS Safety Report 25260652 (Version 1)
Quarter: 2025Q2

REPORT INFORMATION
  Report Type: Spontaneous
  Country: CN (occurrence: CN)
  Receive Date: 20250501
  Receipt Date: 20250501
  Transmission Date: 20250716
  Serious: Yes (Other)
  Sender: NOVO NORDISK
  Company Number: None

PATIENT
  Age: 61 Year
  Sex: Male
  Weight: 54 kg

DRUGS (2)
  1. NOVORAPID [Suspect]
     Active Substance: INSULIN ASPART
     Dosage: 3 IU, TID
     Route: 058
     Dates: start: 202412
  2. NOVORAPID [Suspect]
     Active Substance: INSULIN ASPART
     Indication: Type 2 diabetes mellitus
     Dosage: 6 IU, TID
     Route: 058
     Dates: start: 20241207, end: 202412

REACTIONS (5)
  - Palpitations [Recovered/Resolved]
  - Cold sweat [Recovered/Resolved]
  - Blood glucose decreased [Recovered/Resolved]
  - Diarrhoea [Recovered/Resolved]
  - Overdose [Recovered/Resolved]

NARRATIVE: CASE EVENT DATE: 20241207
